FAERS Safety Report 8586212-4 (Version None)
Quarter: 2012Q3

REPORT INFORMATION
  Report Type: 
  Country: None (occurrence: None)
  Receive Date: 20120810
  Receipt Date: 20120802
  Transmission Date: 20120928
  Serious: Yes (Other)
  Sender: FDA-Public Use
  Company Number: DE-GLAXOSMITHKLINE-B0822046A

PATIENT
  Sex: Female
  Weight: 80 kg

DRUGS (1)
  1. PAZOPANIB [Suspect]
     Indication: METASTATIC RENAL CELL CARCINOMA
     Dates: start: 20120703

REACTIONS (1)
  - ALANINE AMINOTRANSFERASE INCREASED [None]
